FAERS Safety Report 10982792 (Version 1)
Quarter: 2015Q2

REPORT INFORMATION
  Report Type: Spontaneous
  Country: CA (occurrence: CA)
  Receive Date: 20150403
  Receipt Date: 20150403
  Transmission Date: 20150821
  Serious: Yes (Other)
  Sender: FDA-Public Use
  Company Number: CA-TEVA-551967ACC

PATIENT
  Age: 74 Year
  Sex: Female
  Weight: 70 kg

DRUGS (13)
  1. APO FUROSEMIDE [Concomitant]
     Active Substance: FUROSEMIDE
     Dosage: UNKNOWN FORM STRENGTH
     Route: 065
  2. APO METOPROLOL (TYPE L) TAB 50 MG [Concomitant]
     Active Substance: METOPROLOL
     Route: 065
  3. RAN-RAMIPRIL [Concomitant]
     Dosage: UNKNOWN FORM STRENGTH
     Route: 065
  4. NOVO-MYCOPHENOLATE [Suspect]
     Active Substance: MYCOPHENOLIC ACID
     Indication: RENAL TRANSPLANT
     Dosage: 500 MILLIGRAM DAILY;
     Route: 048
  5. ARANESP [Concomitant]
     Active Substance: DARBEPOETIN ALFA
     Dosage: UNKNOWN FORM STRENGTH
     Route: 042
  6. CO ALENDRONATE [Concomitant]
     Dosage: UNKNOWN FORM STRENGTH
     Route: 065
  7. NOVO-GABAPENTIN [Concomitant]
     Dosage: UNKNOWN FORM STRENGTH
     Route: 065
  8. RAPAMUNE [Concomitant]
     Active Substance: SIROLIMUS
     Dosage: UNKNOWN FORM STRENGTH
     Route: 065
  9. SANDOZ OMEPRAZOLE [Concomitant]
     Active Substance: OMEPRAZOLE
     Dosage: DELAYED RELEASE
     Route: 065
  10. CO PRAVASTATIN [Concomitant]
     Dosage: UNKNOWN FORM STRENGTH
     Route: 065
  11. TARO-WARFARIN [Concomitant]
     Active Substance: WARFARIN
     Dosage: UNKNOWN FORM STRENGTH
     Route: 065
  12. NOVO-MYCOPHENOLATE [Suspect]
     Active Substance: MYCOPHENOLIC ACID
     Dosage: 500 MILLIGRAM DAILY;
     Route: 048
  13. APO- PREDNISONE [Concomitant]
     Active Substance: PREDNISONE
     Dosage: UNKNOWN FORM STRENGTH
     Route: 065

REACTIONS (3)
  - Diarrhoea [Recovered/Resolved]
  - Product substitution issue [Recovered/Resolved]
  - Faecal incontinence [Recovered/Resolved]
